FAERS Safety Report 15754591 (Version 1)
Quarter: 2018Q4

REPORT INFORMATION
  Report Type: Spontaneous
  Country: GB (occurrence: GB)
  Receive Date: 20181224
  Receipt Date: 20181224
  Transmission Date: 20190205
  Serious: Yes (Other)
  Sender: FDA-Public Use
  Company Number: GB-TEVA-2018-GB-989940

PATIENT
  Age: 52 Year
  Sex: Female
  Weight: 70 kg

DRUGS (17)
  1. BENZYDAMINE HYDROCHLORIDE [Concomitant]
     Active Substance: BENZYDAMINE HYDROCHLORIDE
     Dosage: 45 ML DAILY;
     Route: 065
     Dates: start: 20180828, end: 20180925
  2. FLUCLOXACILLIN [Concomitant]
     Active Substance: FLUCLOXACILLIN
     Dosage: 4 DOSAGE FORMS DAILY;
     Route: 065
     Dates: start: 20181004, end: 20181011
  3. COLECALCIFEROL [Concomitant]
     Active Substance: CHOLECALCIFEROL
     Dosage: 2 DOSAGE FORMS DAILY;
     Route: 065
     Dates: start: 20181114, end: 20181119
  4. METFORMIN [Concomitant]
     Active Substance: METFORMIN HYDROCHLORIDE
     Dosage: 4 DOSAGE FORMS DAILY;
     Route: 065
     Dates: start: 20180927, end: 20181123
  5. PARACETAMOL [Concomitant]
     Active Substance: ACETAMINOPHEN
     Dosage: TAKE 1 OR 2 4 TIMES PER DAY.
     Route: 065
     Dates: start: 20181017, end: 20181022
  6. NYSTATIN. [Concomitant]
     Active Substance: NYSTATIN
     Dosage: 4 ML DAILY;
     Route: 065
     Dates: start: 20180910, end: 20180915
  7. AMOXICILLIN. [Concomitant]
     Active Substance: AMOXICILLIN
     Dosage: 3 DOSAGE FORMS DAILY;
     Route: 065
     Dates: start: 20181023, end: 20181030
  8. CANESTEN [Concomitant]
     Active Substance: CLOTRIMAZOLE
     Dosage: 2 DOSAGE FORMS DAILY; APPLY.
     Route: 065
     Dates: start: 20181017, end: 20181022
  9. ARIPIPRAZOLE. [Concomitant]
     Active Substance: ARIPIPRAZOLE
     Dosage: 2 DOSAGE FORMS DAILY;
     Route: 065
     Dates: start: 20180927, end: 20181123
  10. CLARITHROMYCIN. [Suspect]
     Active Substance: CLARITHROMYCIN
     Dosage: 500 MILLIGRAM
     Route: 065
     Dates: start: 20181126
  11. TIOCONAZOLE. [Concomitant]
     Active Substance: TIOCONAZOLE
     Dosage: 2 DOSAGE FORMS DAILY; APPLY.
     Route: 065
     Dates: start: 20181004, end: 20181010
  12. FERROUS FUMARATE [Concomitant]
     Active Substance: FERROUS FUMARATE
     Dosage: 2 DOSAGE FORMS DAILY;
     Route: 065
     Dates: start: 20181010, end: 20181107
  13. CHLORHEXIDINE GLUCONATE. [Concomitant]
     Active Substance: CHLORHEXIDINE GLUCONATE
     Dosage: 2 DOSAGE FORMS DAILY;
     Route: 065
     Dates: start: 20181004, end: 20181101
  14. GUAIFENESIN. [Concomitant]
     Active Substance: GUAIFENESIN
     Dosage: 2X 5 ML SPOON 3-4 TIMES/DAY.
     Route: 065
     Dates: start: 20181023, end: 20181030
  15. CLARITHROMYCIN. [Concomitant]
     Active Substance: CLARITHROMYCIN
     Dosage: 1 DOSAGE FORMS
     Route: 065
     Dates: start: 20181114, end: 20181121
  16. OTOMIZE [Concomitant]
     Active Substance: DEXAMETHASONE\NEOMYCIN SULFATE
     Dosage: (ONE METERED DOSE (60 MG) TO BE ADMINISTERED DIR...)
     Route: 065
     Dates: start: 20181010, end: 20181017
  17. VOLTAROL [Concomitant]
     Active Substance: DICLOFENAC SODIUM
     Dosage: 3 DOSAGE FORMS DAILY; APPLY.
     Route: 065
     Dates: start: 20181017, end: 20181031

REACTIONS (2)
  - Anxiety [Unknown]
  - Palpitations [Recovered/Resolved]

NARRATIVE: CASE EVENT DATE: 20181126
